FAERS Safety Report 10162181 (Version 3)
Quarter: 2014Q2

REPORT INFORMATION
  Report Type: Spontaneous
  Country: US (occurrence: US)
  Receive Date: 20140509
  Receipt Date: 20140526
  Transmission Date: 20141212
  Serious: Yes (Hospitalization, Other)
  Sender: FDA-Public Use
  Company Number: US-009507513-1405USA003828

PATIENT
  Age: 91 Year
  Sex: Male

DRUGS (15)
  1. JANUVIA [Suspect]
     Indication: DIABETES MELLITUS
     Dosage: 50 MG, ONCE DAILY
     Route: 048
     Dates: start: 20111226, end: 20140405
  2. LANTUS [Concomitant]
     Dosage: UNK, QPM
  3. LYRICA [Concomitant]
     Dosage: 100 MG, UNK
  4. DIGOXIN [Concomitant]
     Dosage: 125 MICROGRAM, ONCE DAILY
  5. ASPIRIN [Concomitant]
     Dosage: 81 MG, ONCE DAILY
  6. DOCUSATE SODIUM [Concomitant]
     Dosage: 100 MG, TWICE DAILY
  7. LEVOTHYROXINE SODIUM [Concomitant]
     Dosage: 100 MICROGRAM, ONCE DAILY
  8. PANTOPRAZOLE [Concomitant]
     Dosage: 40 MG, ONCE DAILY
  9. ZOCOR [Concomitant]
     Dosage: 20 MG, ONCE DAILY
  10. TAMSULOSIN HYDROCHLORIDE [Concomitant]
     Dosage: 0.4 MG, ONCE DAILY
  11. SINEMET [Concomitant]
     Dosage: 50/200 MG, THREE TIMES DAILY
  12. ASTEPRO [Concomitant]
     Dosage: 2 PER NOSTRIL, TWICE PER DAY
  13. PLAVIX [Concomitant]
     Dosage: 75 MG, UNK
  14. PRINIVIL [Concomitant]
     Dosage: 10 MG, ONCE DAILY
  15. CLARITIN [Concomitant]
     Dosage: 10 MG, ONCE DAILY

REACTIONS (2)
  - Pancreatitis [Recovering/Resolving]
  - Neoplasm malignant [Unknown]
